FAERS Safety Report 7925812 (Version 6)
Quarter: 2013Q1

REPORT INFORMATION
  Report Type: Spontaneous
  Country: US (occurrence: US)
  Receive Date: 20110502
  Receipt Date: 20130108
  Transmission Date: 20140127
  Serious: No
  Sender: FDA-Public Use
  Company Number: US-ASTRAZENECA-2010SE42502

PATIENT
  Age: 56 Year
  Sex: Female

DRUGS (3)
  1. NEXIUM [Suspect]
     Route: 048
  2. NEXIUM [Suspect]
     Route: 048
  3. OMEPRAZOLE [Suspect]
     Route: 048

REACTIONS (11)
  - Gastrooesophageal reflux disease [Unknown]
  - Vocal cord paralysis [Unknown]
  - Hiatus hernia [Unknown]
  - Gastric disorder [Unknown]
  - Bacterial infection [Unknown]
  - Gastrooesophageal reflux disease [Unknown]
  - Eructation [Unknown]
  - Diarrhoea [Unknown]
  - Abdominal pain upper [Unknown]
  - Drug dose omission [Unknown]
  - Drug ineffective [Unknown]
